FAERS Safety Report 12667236 (Version 1)
Quarter: 2016Q3

REPORT INFORMATION
  Report Type: Report from Study
  Country: JP (occurrence: JP)
  Receive Date: 20160819
  Receipt Date: 20160819
  Transmission Date: 20161109
  Serious: Yes (Other)
  Sender: FDA-Public Use
  Company Number: JP-CLINIGEN GROUP PLC/ CLINIGEN HEALTHCARE LTD-JP-CLGN-15-00007

PATIENT
  Age: 50 Year
  Sex: Female
  Weight: 57 kg

DRUGS (14)
  1. ENDOXAN [Suspect]
     Active Substance: CYCLOPHOSPHAMIDE
     Indication: BREAST CANCER
     Route: 042
     Dates: start: 20150415, end: 20150429
  2. SAVENE [Suspect]
     Active Substance: DEXRAZOXANE
     Route: 041
     Dates: start: 20150508, end: 20150508
  3. XYLOCAINE [Concomitant]
     Active Substance: LIDOCAINE HYDROCHLORIDE
     Indication: INFUSION SITE EXTRAVASATION
     Dates: start: 20150506
  4. ADRIACIN [Suspect]
     Active Substance: DOXORUBICIN HYDROCHLORIDE
     Route: 042
     Dates: start: 20150506
  5. DEXAN VG [Concomitant]
     Indication: INFUSION SITE EXTRAVASATION
     Route: 003
     Dates: start: 20150507
  6. KENACORT-A [Concomitant]
     Active Substance: TRIAMCINOLONE
     Indication: INFUSION SITE EXTRAVASATION
     Route: 058
     Dates: start: 20150506
  7. RINDERON V [Concomitant]
     Active Substance: BETAMETHASONE VALERATE
     Indication: PROPHYLAXIS
     Route: 048
     Dates: start: 20150507, end: 20150510
  8. PACLITAXEL. [Concomitant]
     Active Substance: PACLITAXEL
     Indication: BREAST CANCER
     Route: 041
     Dates: start: 20150701
  9. SAVENE [Suspect]
     Active Substance: DEXRAZOXANE
     Indication: INFUSION SITE EXTRAVASATION
     Route: 041
     Dates: start: 20150506, end: 20150507
  10. ISOTONIC SODIUM CHLORIDE SOLUTION [Concomitant]
     Active Substance: SODIUM CHLORIDE
     Indication: MEDICATION DILUTION
     Route: 041
     Dates: start: 20150506, end: 20150508
  11. ADRIACIN [Suspect]
     Active Substance: DOXORUBICIN HYDROCHLORIDE
     Indication: BREAST CANCER
     Route: 042
     Dates: start: 20150415, end: 20150429
  12. ENDOXAN [Suspect]
     Active Substance: CYCLOPHOSPHAMIDE
     Route: 042
     Dates: start: 20150506
  13. ACRINOL HYDRATE [Concomitant]
     Indication: INFUSION SITE EXTRAVASATION
     Route: 003
     Dates: start: 20150506
  14. MUCOSTA [Concomitant]
     Active Substance: REBAMIPIDE
     Indication: PROPHYLAXIS
     Route: 048
     Dates: start: 20150507, end: 20150510

REACTIONS (2)
  - Bone marrow failure [Recovering/Resolving]
  - Cellulitis [Not Recovered/Not Resolved]

NARRATIVE: CASE EVENT DATE: 20150508
